FAERS Safety Report 9769820 (Version 1)
Quarter: 2013Q4

REPORT INFORMATION
  Report Type: Spontaneous
  Country: US (occurrence: US)
  Receive Date: 20131218
  Receipt Date: 20131218
  Transmission Date: 20140711
  Serious: No
  Sender: FDA-Public Use
  Company Number: US-VERTEX PHARMACEUTICALS INC-AE-2011-000785

PATIENT
  Age: 57 Year
  Sex: Male
  Weight: 99.55 kg

DRUGS (7)
  1. INCIVEK [Suspect]
     Indication: HEPATITIS C
     Route: 048
     Dates: start: 20110807
  2. PEGASYS [Concomitant]
     Indication: HEPATITIS C
     Route: 058
     Dates: start: 20110807
  3. RIBAVIRIN [Concomitant]
     Indication: HEPATITIS C
     Route: 048
     Dates: start: 20110807
  4. ASPIRIN [Concomitant]
     Route: 048
  5. CHOLESTEROL PILL [Concomitant]
     Route: 048
  6. HYPERTENSION PILL [Concomitant]
     Indication: HYPERTENSION
     Route: 048
  7. STOOL SOFTENER [Concomitant]
     Indication: CONSTIPATION PROPHYLAXIS
     Route: 048

REACTIONS (2)
  - Poor quality sleep [Not Recovered/Not Resolved]
  - Sluggishness [Not Recovered/Not Resolved]
